FAERS Safety Report 4791070-X (Version None)
Quarter: 2005Q4

REPORT INFORMATION
  Report Type: 
  Country: None (occurrence: None)
  Receive Date: 20051005
  Receipt Date: 20050919
  Transmission Date: 20060501
  Serious: Yes (Other)
  Sender: FDA-Public Use
  Company Number: 11909

PATIENT
  Sex: Male

DRUGS (2)
  1. CARBOPLATIN [Suspect]
     Indication: PROSTATE CANCER
     Dosage: 268.8 MG QD IV
     Route: 042
     Dates: start: 19951229, end: 19960112
  2. ETOPOSIDE [Suspect]
     Indication: PROSTATE CANCER
     Dosage: 50 MG DAILY PO
     Route: 048
     Dates: start: 19951229, end: 19960112

REACTIONS (1)
  - FEBRILE NEUTROPENIA [None]
